FAERS Safety Report 5935814-X (Version None)
Quarter: 2008Q4

REPORT INFORMATION
  Report Type: 
  Country: None (occurrence: None)
  Receive Date: 20081030
  Receipt Date: 20081021
  Transmission Date: 20090506
  Serious: Yes (Other)
  Sender: FDA-Public Use
  Company Number: PHEH2007US11292

PATIENT
  Sex: Male
  Weight: 88.435 kg

DRUGS (7)
  1. ZOMETA [Suspect]
     Indication: PROSTATE CANCER
     Dosage: UNK
     Dates: start: 20051111
  2. CASODEX [Concomitant]
     Dosage: 50 MG, QD
  3. LUPRON [Concomitant]
  4. ATENOLOL [Concomitant]
  5. HYDROCHLOROTHIAZIDE [Concomitant]
  6. PERCOCET [Concomitant]
  7. PENICILLIN ^GRUNENTHAL^ [Concomitant]

REACTIONS (24)
  - ANXIETY [None]
  - DECREASED INTEREST [None]
  - DEFORMITY [None]
  - DISCOMFORT [None]
  - EMOTIONAL DISTRESS [None]
  - GYNAECOMASTIA [None]
  - HERNIA REPAIR [None]
  - HERPES ZOSTER [None]
  - HIATUS HERNIA [None]
  - HOT FLUSH [None]
  - HYPERTENSION [None]
  - HYPOPHAGIA [None]
  - INJURY [None]
  - LEUKOPENIA [None]
  - LIFE EXPECTANCY SHORTENED [None]
  - METASTATIC NEOPLASM [None]
  - NEPHROLITHIASIS [None]
  - NOCTURIA [None]
  - OSTEONECROSIS [None]
  - PAIN [None]
  - PAIN IN JAW [None]
  - RENAL DISORDER [None]
  - THROMBOCYTOPENIA [None]
  - WEIGHT DECREASED [None]
